FAERS Safety Report 9381227 (Version 1)
Quarter: 2013Q3

REPORT INFORMATION
  Report Type: Spontaneous
  Country: KR (occurrence: KR)
  Receive Date: 20130703
  Receipt Date: 20130703
  Transmission Date: 20140515
  Serious: Yes (Other)
  Sender: FDA-Public Use
  Company Number: KR-ROCHE-1240384

PATIENT
  Age: 29 Year
  Sex: Female

DRUGS (4)
  1. MYCOPHENOLATE MOFETIL [Suspect]
     Indication: PROPHYLAXIS AGAINST TRANSPLANT REJECTION
     Route: 065
  2. BEVACIZUMAB [Suspect]
     Indication: RETINAL VEIN OCCLUSION
     Route: 050
  3. BEVACIZUMAB [Suspect]
     Indication: OFF LABEL USE
  4. TACROLIMUS [Suspect]
     Indication: PROPHYLAXIS AGAINST TRANSPLANT REJECTION
     Route: 065

REACTIONS (1)
  - Cytomegalovirus chorioretinitis [Recovered/Resolved]
